FAERS Safety Report 4682840-7 (Version None)
Quarter: 2005Q2

REPORT INFORMATION
  Report Type: 
  Country: None (occurrence: None)
  Receive Date: 20050531
  Receipt Date: 20050118
  Transmission Date: 20051028
  Serious: Yes (Other)
  Sender: FDA-Public Use
  Company Number: 200510397US

PATIENT

DRUGS (3)
  1. LOVENOX [Suspect]
     Indication: THROMBOSIS
     Dosage: 80 MG BID SC
     Route: 058
     Dates: start: 20050110, end: 20050116
  2. WARFARIN SODIUM [Concomitant]
  3. MOTRIN [Concomitant]

REACTIONS (3)
  - ALANINE AMINOTRANSFERASE INCREASED [None]
  - ASPARTATE AMINOTRANSFERASE INCREASED [None]
  - HEPATIC ENZYME INCREASED [None]
